FAERS Safety Report 18987532 (Version 2)
Quarter: 2021Q1

REPORT INFORMATION
  Report Type: Spontaneous
  Country: US (occurrence: US)
  Receive Date: 20210309
  Receipt Date: 20210326
  Transmission Date: 20210420
  Serious: No
  Sender: FDA-Public Use
  Company Number: US-PFIZER INC-2021227188

PATIENT
  Age: 37 Year
  Sex: Female
  Weight: 70.75 kg

DRUGS (4)
  1. OXYCODONE HYDROCHLORIDE. [Concomitant]
     Active Substance: OXYCODONE HYDROCHLORIDE
     Dosage: 10 MG TABLET
  2. IBRANCE [Suspect]
     Active Substance: PALBOCICLIB
     Indication: BREAST CANCER FEMALE
     Dosage: 75 MG, CYCLIC (1 DAILY FOR 21 DAYS)
     Route: 048
     Dates: start: 20210209
  3. ANASTROZOLE. [Concomitant]
     Active Substance: ANASTROZOLE
     Dosage: 100 % POWDER
  4. MORPHINE SULFATE. [Concomitant]
     Active Substance: MORPHINE SULFATE
     Dosage: 100 % POWDER

REACTIONS (2)
  - Oropharyngeal pain [Unknown]
  - Fatigue [Unknown]
